FAERS Safety Report 11876055 (Version 2)
Quarter: 2016Q1

REPORT INFORMATION
  Report Type: Spontaneous
  Country: US (occurrence: US)
  Receive Date: 20151229
  Receipt Date: 20160105
  Transmission Date: 20160526
  Serious: Yes (Other)
  Sender: FDA-Public Use
  Company Number: PHEH2014US002695

PATIENT
  Sex: Female

DRUGS (1)
  1. RECLAST [Suspect]
     Active Substance: ZOLEDRONIC ACID
     Indication: BONE DISORDER
     Dosage: UNK
     Route: 042
     Dates: start: 201102

REACTIONS (13)
  - Jaw disorder [Not Recovered/Not Resolved]
  - Malaise [Not Recovered/Not Resolved]
  - Nervousness [Unknown]
  - Bone pain [Unknown]
  - Pain [Not Recovered/Not Resolved]
  - Influenza like illness [Not Recovered/Not Resolved]
  - Nightmare [Unknown]
  - Feeling abnormal [Not Recovered/Not Resolved]
  - Tooth loss [Unknown]
  - Hyperhidrosis [Not Recovered/Not Resolved]
  - Bone development abnormal [Not Recovered/Not Resolved]
  - Impaired quality of life [Unknown]
  - Pain in extremity [Unknown]
